FAERS Safety Report 9821650 (Version 2)
Quarter: 2014Q1

REPORT INFORMATION
  Report Type: Spontaneous
  Country: US (occurrence: US)
  Receive Date: 20140116
  Receipt Date: 20140128
  Transmission Date: 20141002
  Serious: No
  Sender: FDA-Public Use
  Company Number: US-BIOGENIDEC-2014BI000915

PATIENT
  Age: 59 Year
  Sex: Female
  Weight: 61 kg

DRUGS (14)
  1. VITAMIN D [Concomitant]
  2. DITROPAN XL [Concomitant]
  3. CALCIUM + D [Concomitant]
  4. TECFIDERA [Suspect]
     Indication: PRODUCT USED FOR UNKNOWN INDICATION
     Route: 048
     Dates: start: 20131217
  5. TECFIDERA [Suspect]
     Indication: PRODUCT USED FOR UNKNOWN INDICATION
     Route: 048
  6. TECFIDERA [Suspect]
     Indication: PRODUCT USED FOR UNKNOWN INDICATION
     Route: 048
  7. TECFIDERA [Suspect]
     Indication: PRODUCT USED FOR UNKNOWN INDICATION
     Route: 048
     Dates: start: 20131214
  8. EFFEXOR [Concomitant]
  9. NAPROXEN [Concomitant]
  10. MACRODANTIN [Concomitant]
  11. BACLOFEN [Concomitant]
  12. NITROFURANTIN [Concomitant]
  13. MESTINON [Concomitant]
  14. AMPYRA [Concomitant]

REACTIONS (5)
  - Prescribed underdose [Recovered/Resolved]
  - Flushing [Not Recovered/Not Resolved]
  - Erythema [Unknown]
  - Diarrhoea [Recovered/Resolved]
  - Abdominal pain upper [Unknown]
